FAERS Safety Report 5889721-1 (Version None)
Quarter: 2008Q3

REPORT INFORMATION
  Report Type: 
  Country: None (occurrence: None)
  Receive Date: 20080919
  Receipt Date: 20080915
  Transmission Date: 20090109
  Serious: Yes (Hospitalization)
  Sender: FDA-Public Use
  Company Number: BR-ASTRAZENECA-2008UW19192

PATIENT
  Age: 25 Year
  Sex: Male
  Weight: 95 kg

DRUGS (4)
  1. SEROQUEL [Suspect]
     Indication: BRAIN STEM HAEMORRHAGE
     Route: 048
     Dates: start: 20080801
  2. RISPERIDONE [Concomitant]
  3. DIAZEPAN [Concomitant]
  4. LAMITOR [Concomitant]

REACTIONS (3)
  - NERVOUSNESS [None]
  - SCAR [None]
  - SECRETION DISCHARGE [None]
